FAERS Safety Report 4413199-8 (Version None)
Quarter: 2004Q3

REPORT INFORMATION
  Report Type: 
  Country: None (occurrence: None)
  Receive Date: 20040802
  Receipt Date: 20040802
  Transmission Date: 20050211
  Serious: Yes (Death, Hospitalization)
  Sender: FDA-Public Use
  Company Number: None

PATIENT
  Sex: Male
  Weight: 92.0802 kg

DRUGS (5)
  1. KETOROLAC TROMETHAMINE [Suspect]
     Indication: POST PROCEDURAL PAIN
     Dosage: 30 MG TID-QID IV
     Route: 042
     Dates: start: 20040309, end: 20040316
  2. FENTANYL [Concomitant]
  3. BUPIVACAINE [Concomitant]
  4. MORPHINE [Concomitant]
  5. PROMETHAZINE [Concomitant]

REACTIONS (1)
  - DUODENAL ULCER PERFORATION [None]
